FAERS Safety Report 8198612-5 (Version None)
Quarter: 2012Q1

REPORT INFORMATION
  Report Type: 
  Country: None (occurrence: None)
  Receive Date: 20120309
  Receipt Date: 20120119
  Transmission Date: 20120608
  Serious: No
  Sender: FDA-Public Use
  Company Number: US-AMGEN-USASP2011048751

PATIENT
  Age: 78 Year
  Sex: Female
  Weight: 58.957 kg

DRUGS (4)
  1. VITAMIN TAB [Concomitant]
  2. ASACOL [Concomitant]
  3. ZANTAC [Concomitant]
  4. PROLIA [Suspect]
     Indication: OSTEOPOROSIS POSTMENOPAUSAL
     Dosage: UNK UNK, Q6MO
     Route: 058
     Dates: start: 20101116, end: 20111116

REACTIONS (6)
  - BACK PAIN [None]
  - MYALGIA [None]
  - BONE PAIN [None]
  - ARTHRALGIA [None]
  - PAIN IN JAW [None]
  - FIBROMYALGIA [None]
